FAERS Safety Report 23038111 (Version 3)
Quarter: 2023Q4

REPORT INFORMATION
  Report Type: Spontaneous
  Country: TR (occurrence: TR)
  Receive Date: 20231006
  Receipt Date: 20231108
  Transmission Date: 20240109
  Serious: Yes (Other)
  Sender: FDA-Public Use
  Company Number: TR-UCBSA-2023048285

PATIENT
  Sex: Female
  Weight: 68 kg

DRUGS (1)
  1. CIMZIA [Suspect]
     Active Substance: CERTOLIZUMAB PEGOL
     Indication: Product used for unknown indication
     Dosage: UNK
     Dates: start: 2023

REACTIONS (11)
  - Rheumatic disorder [Unknown]
  - Bedridden [Unknown]
  - Adverse event [Unknown]
  - Skin exfoliation [Unknown]
  - Impaired work ability [Unknown]
  - Dizziness [Unknown]
  - Palpitations [Unknown]
  - Nausea [Unknown]
  - Hypertension [Unknown]
  - Drug ineffective [Unknown]
  - Off label use [Unknown]

NARRATIVE: CASE EVENT DATE: 20230101
